FAERS Safety Report 24004526 (Version 1)
Quarter: 2024Q2

REPORT INFORMATION
  Report Type: Report from Study
  Country: US (occurrence: US)
  Receive Date: 20240624
  Receipt Date: 20240624
  Transmission Date: 20240715
  Serious: Yes (Other)
  Sender: FDA-Public Use
  Company Number: US-MYLANLABS-2024M1056619

PATIENT

DRUGS (6)
  1. MYCOPHENOLATE MOFETIL [Suspect]
     Active Substance: MYCOPHENOLATE MOFETIL
     Indication: Immunosuppressant drug therapy
     Dosage: 500 MILLIGRAM, BID
     Route: 065
  2. MYCOPHENOLATE MOFETIL [Suspect]
     Active Substance: MYCOPHENOLATE MOFETIL
     Indication: Prophylaxis against transplant rejection
  3. TACROLIMUS [Suspect]
     Active Substance: TACROLIMUS
     Indication: Immunosuppressant drug therapy
     Dosage: UNK
     Route: 065
  4. TACROLIMUS [Suspect]
     Active Substance: TACROLIMUS
     Indication: Prophylaxis against transplant rejection
  5. BELATACEPT [Suspect]
     Active Substance: BELATACEPT
     Indication: Immunosuppressant drug therapy
     Dosage: 5 MILLIGRAM/KILOGRAM, MONTHLY
     Route: 065
  6. BELATACEPT [Suspect]
     Active Substance: BELATACEPT
     Indication: Prophylaxis against transplant rejection

REACTIONS (1)
  - Drug ineffective [Unknown]
